FAERS Safety Report 5472234-9 (Version None)
Quarter: 2007Q3

REPORT INFORMATION
  Report Type: 
  Country: None (occurrence: None)
  Receive Date: 20070926
  Receipt Date: 20070911
  Transmission Date: 20080115
  Serious: Yes (Hospitalization, Other)
  Sender: FDA-Public Use
  Company Number: 2007US-09923

PATIENT
  Age: 54 Year
  Sex: Male

DRUGS (4)
  1. LORAZEPAM [Suspect]
     Indication: DRUG USE FOR UNKNOWN INDICATION
     Dosage: IV DRIP
     Route: 041
  2. IV FLUIDS [Concomitant]
  3. THIAMINE [Concomitant]
  4. VITAMIN CAP [Concomitant]

REACTIONS (10)
  - ALCOHOL WITHDRAWAL SYNDROME [None]
  - BLOOD CHLORIDE DECREASED [None]
  - BLOOD LACTIC ACID INCREASED [None]
  - BLOOD OSMOLARITY INCREASED [None]
  - BLOOD SODIUM DECREASED [None]
  - HAEMATOMA [None]
  - HAEMATOTOXICITY [None]
  - HAEMODIALYSIS [None]
  - METABOLIC ACIDOSIS [None]
  - RENAL INJURY [None]
